FAERS Safety Report 18647940 (Version 1)
Quarter: 2020Q4

REPORT INFORMATION
  Report Type: Report from Study
  Country: IL (occurrence: IL)
  Receive Date: 20201222
  Receipt Date: 20201222
  Transmission Date: 20210114
  Serious: Yes (Congenital Anomaly, Other)
  Sender: FDA-Public Use
  Company Number: IL-VISTAPHARM, INC.-VER202012-002163

PATIENT
  Sex: Male
  Weight: 2.75 kg

DRUGS (3)
  1. ONDANSETRON [Suspect]
     Active Substance: ONDANSETRON
     Dosage: UNKNOWN
     Route: 064
  2. DOXYLAMINE [Suspect]
     Active Substance: DOXYLAMINE
     Dosage: UNKNOWN
     Route: 064
  3. METOCLOPRAMIDE. [Suspect]
     Active Substance: METOCLOPRAMIDE
     Dosage: UNKNOWN
     Route: 064

REACTIONS (2)
  - Foetal exposure during pregnancy [Unknown]
  - Ventricular septal defect [Unknown]
